FAERS Safety Report 25767015 (Version 3)
Quarter: 2025Q4

REPORT INFORMATION
  Report Type: Report from Study
  Country: PR (occurrence: PR)
  Receive Date: 20250905
  Receipt Date: 20251006
  Transmission Date: 20260118
  Serious: Yes (Hospitalization)
  Sender: ABBVIE
  Company Number: PR-ABBVIE-6319495

PATIENT
  Age: 52 Year
  Sex: Male

DRUGS (3)
  1. VENCLEXTA [Suspect]
     Active Substance: VENETOCLAX
     Indication: Plasma cell myeloma
     Route: 048
     Dates: start: 2025
  2. VENCLEXTA [Suspect]
     Active Substance: VENETOCLAX
     Indication: Plasma cell myeloma
     Dosage: 28 DAYS?LAST ADMIN DATE: 2025
     Route: 048
     Dates: start: 20250521
  3. PERCOCET [Concomitant]
     Active Substance: ACETAMINOPHEN\OXYCODONE HYDROCHLORIDE
     Indication: Product used for unknown indication
     Dosage: 10-325 MG
     Route: 048

REACTIONS (21)
  - Haemoglobin decreased [Recovered/Resolved]
  - Nausea [Recovered/Resolved]
  - White blood cell count decreased [Recovering/Resolving]
  - Decreased appetite [Recovered/Resolved]
  - Pain [Recovering/Resolving]
  - Abdominal discomfort [Recovering/Resolving]
  - Cough [Recovered/Resolved]
  - Constipation [Unknown]
  - Platelet count decreased [Recovering/Resolving]
  - Bone pain [Unknown]
  - White blood cell count decreased [Recovered/Resolved]
  - Nausea [Recovering/Resolving]
  - Cough [Recovered/Resolved]
  - Decreased appetite [Unknown]
  - Haemoglobin decreased [Recovering/Resolving]
  - Pain [Recovered/Resolved]
  - Fatigue [Unknown]
  - Diarrhoea [Unknown]
  - Cough [Recovering/Resolving]
  - Blood creatinine increased [Not Recovered/Not Resolved]
  - Platelet count decreased [Recovered/Resolved]

NARRATIVE: CASE EVENT DATE: 20250101
